FAERS Safety Report 22955602 (Version 2)
Quarter: 2024Q3

REPORT INFORMATION
  Report Type: Report from Study
  Country: US (occurrence: US)
  Receive Date: 20230918
  Receipt Date: 20240831
  Transmission Date: 20241017
  Serious: No
  Sender: NOVARTIS
  Company Number: US-SANDOZ-SDZ2023US029001

PATIENT
  Sex: Male
  Weight: 117.93 kg

DRUGS (2)
  1. METHOTREXATE [Suspect]
     Active Substance: METHOTREXATE
     Indication: Psoriasis
     Dosage: UNK
     Route: 065
  2. COSENTYX [Suspect]
     Active Substance: SECUKINUMAB
     Indication: Psoriasis
     Dosage: UNK
     Route: 065
     Dates: end: 202202

REACTIONS (10)
  - Post inflammatory pigmentation change [Unknown]
  - Tinea cruris [Unknown]
  - Erythema [Unknown]
  - Skin exfoliation [Unknown]
  - Skin plaque [Unknown]
  - Skin lesion [Unknown]
  - Rash erythematous [Unknown]
  - Skin burning sensation [Unknown]
  - Pain of skin [Unknown]
  - Therapeutic product effect incomplete [Unknown]
